FAERS Safety Report 4660369-X (Version None)
Quarter: 2005Q2

REPORT INFORMATION
  Report Type: 
  Country: None (occurrence: None)
  Receive Date: 20050505
  Receipt Date: 20050228
  Transmission Date: 20051028
  Serious: No
  Sender: FDA-Public Use
  Company Number: 2005USFACT00362

PATIENT
  Age: 47 Year
  Sex: Female
  Weight: 102 kg

DRUGS (6)
  1. FACTIVE [Suspect]
     Indication: RESPIRATORY TRACT INFECTION BACTERIAL
     Dosage: 320.00 MG QD, ORAL
     Route: 048
     Dates: start: 20050105, end: 20050111
  2. NASACORT AQ (TRIAMCINOLONE ACETONIDE) [Concomitant]
  3. MUCINEX [Concomitant]
  4. ADVAIR (FLUTICASONE PROPIONATE, SALMETEROL XINAFOATE) [Concomitant]
  5. COMBIVENT [Concomitant]
  6. PRAVACHOL [Concomitant]

REACTIONS (4)
  - CHILLS [None]
  - PHARYNGOLARYNGEAL PAIN [None]
  - RASH GENERALISED [None]
  - URTICARIA [None]
